FAERS Safety Report 23891232 (Version 1)
Quarter: 2024Q2

REPORT INFORMATION
  Report Type: Spontaneous
  Country: GR (occurrence: GR)
  Receive Date: 20240523
  Receipt Date: 20240523
  Transmission Date: 20240716
  Serious: Yes (Other)
  Sender: FDA-Public Use
  Company Number: GR-STRIDES ARCOLAB LIMITED-2024SP006046

PATIENT
  Age: 39 Year
  Sex: Female

DRUGS (8)
  1. TRAMADOL [Suspect]
     Active Substance: TRAMADOL\TRAMADOL HYDROCHLORIDE
     Indication: Neuralgia
     Dosage: 150 MILLIGRAM
     Route: 065
  2. TRAMADOL [Suspect]
     Active Substance: TRAMADOL\TRAMADOL HYDROCHLORIDE
     Indication: Chest pain
  3. PREGABALIN [Suspect]
     Active Substance: PREGABALIN
     Indication: Neuralgia
     Dosage: 300 MILLIGRAM
     Route: 065
  4. PREGABALIN [Suspect]
     Active Substance: PREGABALIN
     Indication: Chest pain
  5. ACETAMINOPHEN [Suspect]
     Active Substance: ACETAMINOPHEN
     Indication: Neuralgia
     Dosage: 3 GRAM
     Route: 065
  6. ACETAMINOPHEN [Suspect]
     Active Substance: ACETAMINOPHEN
     Indication: Chest pain
  7. DULOXETINE [Suspect]
     Active Substance: DULOXETINE
     Indication: Neuralgia
     Dosage: 60 MILLIGRAM, QD
     Route: 065
  8. DULOXETINE [Suspect]
     Active Substance: DULOXETINE
     Indication: Chest pain

REACTIONS (1)
  - Therapy non-responder [Unknown]
